FAERS Safety Report 15553074 (Version 1)
Quarter: 2018Q4

REPORT INFORMATION
  Report Type: Spontaneous
  Country: US (occurrence: US)
  Receive Date: 20181026
  Receipt Date: 20181026
  Transmission Date: 20190205
  Serious: No
  Sender: FDA-Public Use
  Company Number: US-BIOGEN-2018BI00649370

PATIENT
  Sex: Female

DRUGS (2)
  1. TYSABRI [Suspect]
     Active Substance: NATALIZUMAB
     Indication: MULTIPLE SCLEROSIS
     Route: 065
     Dates: start: 20110608, end: 20130329
  2. TYSABRI [Suspect]
     Active Substance: NATALIZUMAB
     Dates: start: 20131108

REACTIONS (1)
  - Maternal exposure during pregnancy [Unknown]
